FAERS Safety Report 10662663 (Version 4)
Quarter: 2015Q2

REPORT INFORMATION
  Report Type: Report from Study
  Country: US (occurrence: US)
  Receive Date: 20141218
  Receipt Date: 20150521
  Transmission Date: 20150821
  Serious: Yes (Other)
  Sender: FDA-Public Use
  Company Number: US-ABBVIE-14K-163-1322110-00

PATIENT
  Sex: Male
  Weight: 136.2 kg

DRUGS (2)
  1. HUMIRA [Suspect]
     Active Substance: ADALIMUMAB
     Indication: PSORIATIC ARTHROPATHY
     Route: 065
     Dates: start: 2012
  2. HUMIRA [Suspect]
     Active Substance: ADALIMUMAB
     Indication: RHEUMATOID ARTHRITIS
     Route: 065

REACTIONS (14)
  - Infection [Recovering/Resolving]
  - Pyrexia [Recovered/Resolved]
  - Muscular weakness [Unknown]
  - Asthenia [Not Recovered/Not Resolved]
  - Contusion [Not Recovered/Not Resolved]
  - Knee arthroplasty [Recovering/Resolving]
  - Myalgia [Unknown]
  - Alopecia [Not Recovered/Not Resolved]
  - Peripheral swelling [Not Recovered/Not Resolved]
  - Bone pain [Unknown]
  - Drug ineffective [Not Recovered/Not Resolved]
  - Pain in extremity [Not Recovered/Not Resolved]
  - Procedural haemorrhage [Recovering/Resolving]
  - Mobility decreased [Unknown]

NARRATIVE: CASE EVENT DATE: 2014
